FAERS Safety Report 24094797 (Version 3)
Quarter: 2024Q3

REPORT INFORMATION
  Report Type: Report from Study
  Country: CO (occurrence: CO)
  Receive Date: 20240716
  Receipt Date: 20240722
  Transmission Date: 20241016
  Serious: Yes (Other)
  Sender: REGENERON
  Company Number: CO-BAYER-2024A100793

PATIENT
  Age: 49 Year
  Sex: Female

DRUGS (4)
  1. EYLEA [Suspect]
     Active Substance: AFLIBERCEPT
     Indication: Diabetic retinal oedema
     Dosage: 2 ML EYLIA BOTH EYES , 40 MG/ML
     Route: 031
     Dates: start: 20220101
  2. EYLEA [Suspect]
     Active Substance: AFLIBERCEPT
     Dosage: 2 ML, ONCE (BOTH EYE), 40 MG/ML
     Route: 031
     Dates: start: 20240219, end: 20240219
  3. EYLEA [Suspect]
     Active Substance: AFLIBERCEPT
     Dosage: 2 ML, ONCE (BOTH EYE), 40 MG/ML
     Route: 031
     Dates: start: 20240408, end: 20240408
  4. EYLEA [Suspect]
     Active Substance: AFLIBERCEPT
     Dosage: 2 ML, ONCE (BOTH EYE), 40 MG/ML
     Route: 031
     Dates: start: 20240520, end: 20240520

REACTIONS (2)
  - Eye haemorrhage [Unknown]
  - Inappropriate schedule of product administration [Unknown]

NARRATIVE: CASE EVENT DATE: 20240520
